FAERS Safety Report 10143217 (Version 3)
Quarter: 2015Q3

REPORT INFORMATION
  Report Type: Spontaneous
  Country: TN (occurrence: TN)
  Receive Date: 20140430
  Receipt Date: 20150722
  Transmission Date: 20151125
  Serious: Yes (Death, Hospitalization, Other)
  Sender: FDA-Public Use
  Company Number: TN-ASTRAZENECA-2014SE29199

PATIENT
  Age: 84 Year
  Sex: Female

DRUGS (48)
  1. ESOMEPRAZOLE [Suspect]
     Active Substance: ESOMEPRAZOLE
     Indication: DYSPEPSIA
     Route: 048
     Dates: start: 201305, end: 2013
  2. ETILEFRINE [Suspect]
     Active Substance: ETILEFRINE
     Indication: ASTHENIA
     Dates: start: 201305, end: 2013
  3. ACETYL-DL-LEUCINE [Suspect]
     Active Substance: ACETYLLEUCINE
     Indication: ASTHENIA
  4. ACETYL-DL-LEUCINE [Suspect]
     Active Substance: ACETYLLEUCINE
     Indication: DYSPEPSIA
  5. VITAMIN B1 [Suspect]
     Active Substance: THIAMINE HYDROCHLORIDE
     Indication: DYSPEPSIA
  6. VITAMIN B1 [Suspect]
     Active Substance: THIAMINE HYDROCHLORIDE
     Indication: DIZZINESS
  7. VITAMIN B12 [Suspect]
     Active Substance: CYANOCOBALAMIN
     Indication: ASTHENIA
  8. ESOMEPRAZOLE [Suspect]
     Active Substance: ESOMEPRAZOLE
     Indication: ASTHENIA
     Route: 048
     Dates: start: 201305, end: 2013
  9. ETILEFRINE [Suspect]
     Active Substance: ETILEFRINE
     Indication: ASTHENIA
  10. ACETYL-DL-LEUCINE [Suspect]
     Active Substance: ACETYLLEUCINE
     Indication: ASTHENIA
     Dates: start: 201305, end: 2013
  11. HEMATOPORPHYRIN [Suspect]
     Active Substance: HEMATOPORPHYRIN
     Indication: DYSPEPSIA
     Dosage: 1 AMPOULE/DAY
     Dates: start: 201305, end: 2013
  12. VITAMIN B1 [Suspect]
     Active Substance: THIAMINE HYDROCHLORIDE
     Indication: DYSPEPSIA
  13. ETILEFRINE [Suspect]
     Active Substance: ETILEFRINE
     Indication: DIZZINESS
  14. ACETYL-DL-LEUCINE [Suspect]
     Active Substance: ACETYLLEUCINE
     Indication: DIZZINESS
     Dates: start: 201305, end: 2013
  15. ACETYL-DL-LEUCINE [Suspect]
     Active Substance: ACETYLLEUCINE
     Indication: DIZZINESS
  16. HEMATOPORPHYRIN [Suspect]
     Active Substance: HEMATOPORPHYRIN
     Indication: ASTHENIA
  17. VITAMIN B1 [Suspect]
     Active Substance: THIAMINE HYDROCHLORIDE
     Indication: DIZZINESS
  18. VITAMIN B12 [Suspect]
     Active Substance: CYANOCOBALAMIN
     Indication: DIZZINESS
  19. VITAMIN B12 [Suspect]
     Active Substance: CYANOCOBALAMIN
     Indication: ASTHENIA
  20. VITAMIN B12 [Suspect]
     Active Substance: CYANOCOBALAMIN
     Indication: DYSPEPSIA
  21. ESOMEPRAZOLE [Suspect]
     Active Substance: ESOMEPRAZOLE
     Indication: DIZZINESS
     Route: 048
     Dates: start: 201305, end: 2013
  22. ETILEFRINE [Suspect]
     Active Substance: ETILEFRINE
     Indication: ASTHENIA
  23. ACETYL-DL-LEUCINE [Suspect]
     Active Substance: ACETYLLEUCINE
     Indication: DIZZINESS
  24. HEMATOPORPHYRIN [Suspect]
     Active Substance: HEMATOPORPHYRIN
     Indication: ASTHENIA
     Dosage: 1 AMPOULE/DAY
     Dates: start: 201305, end: 2013
  25. HEMATOPORPHYRIN [Suspect]
     Active Substance: HEMATOPORPHYRIN
     Indication: ASTHENIA
  26. HEMATOPORPHYRIN [Suspect]
     Active Substance: HEMATOPORPHYRIN
     Indication: DIZZINESS
  27. HEMATOPORPHYRIN [Suspect]
     Active Substance: HEMATOPORPHYRIN
     Indication: DYSPEPSIA
  28. VITAMIN B1 [Suspect]
     Active Substance: THIAMINE HYDROCHLORIDE
     Indication: ASTHENIA
  29. ETILEFRINE [Suspect]
     Active Substance: ETILEFRINE
     Indication: DYSPEPSIA
  30. ACETYL-DL-LEUCINE [Suspect]
     Active Substance: ACETYLLEUCINE
     Indication: ASTHENIA
  31. HEMATOPORPHYRIN [Suspect]
     Active Substance: HEMATOPORPHYRIN
     Indication: DIZZINESS
  32. HEMATOPORPHYRIN [Suspect]
     Active Substance: HEMATOPORPHYRIN
     Indication: DYSPEPSIA
  33. VITAMIN B1 [Suspect]
     Active Substance: THIAMINE HYDROCHLORIDE
     Indication: DYSPEPSIA
     Dosage: 1 AMPOULE/DAY
     Dates: start: 201305, end: 2013
  34. VITAMIN B12 [Suspect]
     Active Substance: CYANOCOBALAMIN
     Indication: DIZZINESS
  35. VITAMIN B12 [Suspect]
     Active Substance: CYANOCOBALAMIN
     Indication: DYSPEPSIA
  36. ETILEFRINE [Suspect]
     Active Substance: ETILEFRINE
     Indication: DYSPEPSIA
  37. ACETYL-DL-LEUCINE [Suspect]
     Active Substance: ACETYLLEUCINE
     Indication: DYSPEPSIA
     Dates: start: 201305, end: 2013
  38. VITAMIN B12 [Suspect]
     Active Substance: CYANOCOBALAMIN
     Indication: DIZZINESS
     Dosage: 1 AMPOULE/DAY
     Dates: start: 201305, end: 2013
  39. VITAMIN B12 [Suspect]
     Active Substance: CYANOCOBALAMIN
     Indication: DYSPEPSIA
     Dosage: 1 AMPOULE/DAY
     Dates: start: 201305, end: 2013
  40. ETILEFRINE [Suspect]
     Active Substance: ETILEFRINE
     Indication: DIZZINESS
     Dates: start: 201305, end: 2013
  41. ETILEFRINE [Suspect]
     Active Substance: ETILEFRINE
     Indication: DYSPEPSIA
     Dates: start: 201305, end: 2013
  42. ETILEFRINE [Suspect]
     Active Substance: ETILEFRINE
     Indication: DIZZINESS
  43. HEMATOPORPHYRIN [Suspect]
     Active Substance: HEMATOPORPHYRIN
     Indication: DIZZINESS
     Dosage: 1 AMPOULE/DAY
     Dates: start: 201305, end: 2013
  44. VITAMIN B1 [Suspect]
     Active Substance: THIAMINE HYDROCHLORIDE
     Indication: ASTHENIA
     Dosage: 1 AMPOULE/DAY
     Dates: start: 201305, end: 2013
  45. VITAMIN B12 [Suspect]
     Active Substance: CYANOCOBALAMIN
     Indication: ASTHENIA
     Dosage: 1 AMPOULE/DAY
     Dates: start: 201305, end: 2013
  46. ACETYL-DL-LEUCINE [Suspect]
     Active Substance: ACETYLLEUCINE
     Indication: DYSPEPSIA
  47. VITAMIN B1 [Suspect]
     Active Substance: THIAMINE HYDROCHLORIDE
     Indication: DIZZINESS
     Dosage: 1 AMPOULE/DAY
     Dates: start: 201305, end: 2013
  48. VITAMIN B1 [Suspect]
     Active Substance: THIAMINE HYDROCHLORIDE
     Indication: ASTHENIA

REACTIONS (2)
  - Drug reaction with eosinophilia and systemic symptoms [Fatal]
  - Multi-organ failure [Fatal]

NARRATIVE: CASE EVENT DATE: 2013
